FAERS Safety Report 5225784-4 (Version None)
Quarter: 2007Q1

REPORT INFORMATION
  Report Type: 
  Country: None (occurrence: None)
  Receive Date: 20070201
  Receipt Date: 20070125
  Transmission Date: 20070707
  Serious: Yes (Death, Other)
  Sender: FDA-Public Use
  Company Number: US-JNJFOC-20070106850

PATIENT
  Sex: Female

DRUGS (9)
  1. INFLIXIMAB [Suspect]
     Indication: RHEUMATOID ARTHRITIS
     Route: 042
  2. ARAVA [Concomitant]
  3. PREDNISONE [Concomitant]
  4. DICLOFENAC SODIUM [Concomitant]
  5. TOPROL-XL [Concomitant]
  6. INDAPAMIDE [Concomitant]
  7. POTASSIUM ACETATE [Concomitant]
  8. CALCIUM [Concomitant]
  9. BENADRYL [Concomitant]
     Dosage: 25 MG 4-5 TABLETS DAILY
     Route: 048

REACTIONS (2)
  - CARDIAC FAILURE CONGESTIVE [None]
  - NERVOUS SYSTEM DISORDER [None]
